FAERS Safety Report 5926451-1 (Version None)
Quarter: 2008Q4

REPORT INFORMATION
  Report Type: 
  Country: None (occurrence: None)
  Receive Date: 20081022
  Receipt Date: 20081009
  Transmission Date: 20090506
  Serious: Yes (Congenital Anomaly)
  Sender: FDA-Public Use
  Company Number: DE-SOLVAY-00208004809

PATIENT
  Sex: Male

DRUGS (1)
  1. UTROGESTAN [Suspect]
     Indication: DRUG EXPOSURE DURING PREGNANCY
     Dosage: DAILY DOSE: 400 MILLIGRAM(S)
     Route: 064
     Dates: start: 20070601, end: 20070901

REACTIONS (1)
  - HYPOSPADIAS [None]
